FAERS Safety Report 7285156 (Version 5)
Quarter: 2013Q4

REPORT INFORMATION
  Report Type: Spontaneous
  Country: US (occurrence: US)
  Receive Date: 20100219
  Receipt Date: 20131202
  Transmission Date: 20140711
  Serious: Yes (Hospitalization, Other)
  Sender: FDA-Public Use
  Company Number: US-BAYER-201013987NA

PATIENT
  Age: 36 Year
  Sex: Female
  Weight: 91.61 kg

DRUGS (12)
  1. YASMIN [Suspect]
     Indication: CONTRACEPTION
     Route: 048
     Dates: start: 2003, end: 2010
  2. OCELLA [Suspect]
     Indication: CONTRACEPTION
     Dosage: UNK
     Dates: start: 2008, end: 2008
  3. PREVACID [Concomitant]
     Indication: GASTROOESOPHAGEAL REFLUX DISEASE
     Dosage: 30 MG, UNK
     Dates: start: 20080609
  4. SYNTHROID [Concomitant]
     Dosage: 100 ?G, QD
     Dates: start: 2003
  5. LEVAQUIN [Concomitant]
     Dosage: UNK
     Dates: start: 2008, end: 2010
  6. OLOPATADINE HYDROCHLORIDE [Concomitant]
  7. CLOTRIMAZOLE W/BETAMETHASONE DIPROPIONAT [Concomitant]
     Dosage: UNK UNK, TID
  8. FLUCONAZOLE [Concomitant]
     Dosage: UNK
  9. ASTELIN [Concomitant]
     Dosage: 2 PUFF(S), BID
  10. CLARITHROMYCIN [Concomitant]
  11. AZITHROMYCIN [Concomitant]
     Dosage: 250 MG, UNK
  12. TRICOR [Concomitant]
     Dosage: UNK
     Dates: start: 20080621

REACTIONS (3)
  - Cholecystectomy [Unknown]
  - Gastrooesophageal reflux disease [None]
  - Cholecystitis chronic [None]
